FAERS Safety Report 17731770 (Version 1)
Quarter: 2020Q2

REPORT INFORMATION
  Report Type: Report from Study
  Country: US (occurrence: US)
  Receive Date: 20200501
  Receipt Date: 20200501
  Transmission Date: 20200714
  Serious: Yes (Other)
  Sender: FDA-Public Use
  Company Number: US-ROCHE-2555901

PATIENT
  Sex: Male

DRUGS (1)
  1. ALECENSA [Suspect]
     Active Substance: ALECTINIB HYDROCHLORIDE
     Indication: BRONCHIAL CARCINOMA
     Dosage: TAKE 4 CAPSULE(S) BY MOUTH TWICE A DAY WITH FOOD
     Route: 048
     Dates: start: 201502

REACTIONS (12)
  - Dyspepsia [Unknown]
  - Decreased appetite [Unknown]
  - Diastolic dysfunction [Unknown]
  - Constipation [Unknown]
  - Dyspnoea [Unknown]
  - Hepatic cancer [Unknown]
  - Fatigue [Unknown]
  - Heart rate decreased [Unknown]
  - Somnolence [Unknown]
  - Joint swelling [Unknown]
  - Cardiac murmur [Unknown]
  - Heart rate increased [Unknown]
